FAERS Safety Report 18360267 (Version 1)
Quarter: 2020Q4

REPORT INFORMATION
  Report Type: Spontaneous
  Country: US (occurrence: US)
  Receive Date: 20201007
  Receipt Date: 20201007
  Transmission Date: 20210114
  Serious: No
  Sender: FDA-Public Use
  Company Number: None

PATIENT
  Age: 51 Year
  Sex: Male

DRUGS (1)
  1. NAVANE [Suspect]
     Active Substance: THIOTHIXENE

REACTIONS (13)
  - Hallucination [None]
  - Drug dependence [None]
  - Delusion [None]
  - Porphyria [None]
  - Crime [None]
  - Head banging [None]
  - Coproporphyrinogen increased [None]
  - Quality of life decreased [None]
  - Memory impairment [None]
  - Imprisonment [None]
  - Cerebral disorder [None]
  - Condition aggravated [None]
  - Aggression [None]
